FAERS Safety Report 10149144 (Version 1)
Quarter: 2014Q2

REPORT INFORMATION
  Report Type: Spontaneous
  Country: US (occurrence: None)
  Receive Date: 20140501
  Receipt Date: 20140501
  Transmission Date: 20141212
  Serious: Yes (Hospitalization)
  Sender: FDA-Public Use
  Company Number: None

PATIENT
  Age: 63 Year
  Sex: Female

DRUGS (8)
  1. LORAZEPAM [Suspect]
     Indication: ANXIETY
     Route: 042
     Dates: start: 20130608, end: 20130608
  2. DAPTOMYCIN [Concomitant]
  3. FAMOTIDINE [Concomitant]
  4. HYDROXYZINE [Concomitant]
  5. NYSTATIN [Concomitant]
  6. PIPERCILLIN/TAZOBACTUM [Concomitant]
  7. POTASSIUM CHLORIDE [Concomitant]
  8. VANCOMYCIN [Concomitant]

REACTIONS (5)
  - Hyperbilirubinaemia [None]
  - Lethargy [None]
  - Blood pressure decreased [None]
  - Respiratory rate decreased [None]
  - Respiratory rate increased [None]
